FAERS Safety Report 5325889-3 (Version None)
Quarter: 2007Q2

REPORT INFORMATION
  Report Type: 
  Country: None (occurrence: None)
  Receive Date: 20070516
  Receipt Date: 20070506
  Transmission Date: 20071010
  Serious: Yes (Other)
  Sender: FDA-Public Use
  Company Number: US-JNJFOC-20070100509

PATIENT
  Age: 3 Decade
  Sex: Female

DRUGS (5)
  1. REMICADE [Suspect]
     Indication: CROHN'S DISEASE
     Dosage: ON MAINTENANCE
     Route: 042
  2. TRILEPTAL [Concomitant]
  3. LEXAPRO [Concomitant]
  4. PREDNISONE TAB [Concomitant]
  5. 6MP [Concomitant]

REACTIONS (3)
  - DRUG EXPOSURE DURING PREGNANCY [None]
  - PLACENTA PRAEVIA [None]
  - PREMATURE SEPARATION OF PLACENTA [None]
